FAERS Safety Report 9254215 (Version 1)
Quarter: 2013Q2

REPORT INFORMATION
  Report Type: Spontaneous
  Country: US (occurrence: None)
  Receive Date: 20130422
  Receipt Date: 20130422
  Transmission Date: 20140414
  Serious: No
  Sender: FDA-Public Use
  Company Number: None

PATIENT
  Age: 34 Year
  Sex: Female

DRUGS (1)
  1. COPAXONE 20MG TEVA [Suspect]
     Indication: MULTIPLE SCLEROSIS
     Dosage: 20MG  DAILY  SQ
     Route: 058
     Dates: start: 20130326

REACTIONS (1)
  - Rash [None]
